FAERS Safety Report 15331359 (Version 1)
Quarter: 2018Q4

REPORT INFORMATION
  Report Type: Spontaneous
  Country: DE (occurrence: DE)
  Receive Date: 20180829
  Receipt Date: 20180829
  Transmission Date: 20190204
  Serious: Yes (Other)
  Sender: FDA-Public Use
  Company Number: DE-TEVA-2018-DE-949098

PATIENT
  Age: 71 Year
  Sex: Male
  Weight: 84 kg

DRUGS (2)
  1. METFORMIN [Concomitant]
     Active Substance: METFORMIN HYDROCHLORIDE
     Indication: TYPE 2 DIABETES MELLITUS
  2. SALBUTAMOL-RATIOPHARM INHALATIONSL?SUNG [Suspect]
     Active Substance: ALBUTEROL
     Indication: BRONCHIECTASIS
     Dosage: 5 GTT DAILY;
     Route: 055
     Dates: start: 201803, end: 201807

REACTIONS (3)
  - Myocardial infarction [Unknown]
  - Tremor [Unknown]
  - Glycosylated haemoglobin increased [Unknown]

NARRATIVE: CASE EVENT DATE: 2018
